FAERS Safety Report 5519815-1 (Version None)
Quarter: 2007Q4

REPORT INFORMATION
  Report Type: 
  Country: None (occurrence: None)
  Receive Date: 20071116
  Receipt Date: 20070829
  Transmission Date: 20080405
  Serious: No
  Sender: FDA-Public Use
  Company Number: A0677384A

PATIENT
  Age: 64 Year
  Sex: Female

DRUGS (11)
  1. COREG CR [Suspect]
     Indication: HYPERTENSION
     Dosage: 20UNIT PER DAY
     Route: 048
     Dates: start: 20070703
  2. LISINOPRIL [Concomitant]
  3. NORTRIPTYLINE HCL [Concomitant]
  4. CLONIDINE [Concomitant]
  5. ALDACTONE [Concomitant]
  6. POTASSIUM CHLORIDE [Concomitant]
  7. ESTROGEN [Concomitant]
  8. LEXAPRO [Concomitant]
  9. PLAVIX [Concomitant]
  10. ASPIRIN [Concomitant]
  11. CENTRUM [Concomitant]

REACTIONS (2)
  - COUGH [None]
  - RHINORRHOEA [None]
